FAERS Safety Report 26148529 (Version 1)
Quarter: 2025Q4

REPORT INFORMATION
  Report Type: Spontaneous
  Country: US (occurrence: US)
  Receive Date: 20251212
  Receipt Date: 20251212
  Transmission Date: 20260118
  Serious: No
  Sender: ALVOGEN
  Company Number: None

PATIENT

DRUGS (1)
  1. LISDEXAMFETAMINE [Suspect]
     Active Substance: LISDEXAMFETAMINE
     Indication: Product used for unknown indication

REACTIONS (11)
  - Loss of personal independence in daily activities [Recovering/Resolving]
  - Impaired work ability [Recovering/Resolving]
  - Personal relationship issue [Recovering/Resolving]
  - Weight increased [Recovering/Resolving]
  - Condition aggravated [Recovering/Resolving]
  - Sleep deficit [Recovering/Resolving]
  - Hypertension [Recovering/Resolving]
  - Anxiety [Recovering/Resolving]
  - Depression [Recovering/Resolving]
  - Product quality issue [Unknown]
  - Drug ineffective [Unknown]
